FAERS Safety Report 6109051-2 (Version None)
Quarter: 2009Q1

REPORT INFORMATION
  Report Type: 
  Country: None (occurrence: None)
  Receive Date: 20090310
  Receipt Date: 20090226
  Transmission Date: 20090719
  Serious: Yes (Other)
  Sender: FDA-Public Use
  Company Number: DE-BAYER-200911419GPV

PATIENT
  Age: 82 Year
  Sex: Female
  Weight: 65 kg

DRUGS (4)
  1. AVELOX [Suspect]
     Indication: INFECTION
     Route: 048
     Dates: start: 20090101, end: 20090112
  2. AVELOX [Suspect]
     Indication: INFECTION
     Route: 042
     Dates: start: 20090101, end: 20090101
  3. BISOPROLOL [Concomitant]
     Indication: DRUG USE FOR UNKNOWN INDICATION
     Dosage: TOTAL DAILY DOSE: 2.5 MG  UNIT DOSE: 2.5 MG
     Route: 065
     Dates: start: 20090102
  4. ASPIRIN [Concomitant]
     Indication: DRUG USE FOR UNKNOWN INDICATION
     Dosage: TOTAL DAILY DOSE: 100 MG  UNIT DOSE: 100 MG
     Route: 065
     Dates: start: 20090102

REACTIONS (9)
  - AGGRESSION [None]
  - COGNITIVE DISORDER [None]
  - DEPRESSION [None]
  - FEAR [None]
  - MOOD ALTERED [None]
  - NEGATIVISM [None]
  - PARANOIA [None]
  - RESTLESSNESS [None]
  - SUICIDAL IDEATION [None]
